FAERS Safety Report 6890600-1 (Version None)
Quarter: 2010Q3

REPORT INFORMATION
  Report Type: 
  Country: None (occurrence: None)
  Receive Date: 20100731
  Receipt Date: 20081219
  Transmission Date: 20110219
  Serious: No
  Sender: FDA-Public Use
  Company Number: US-PFIZER INC-2008083888

PATIENT
  Sex: Female
  Weight: 45 kg

DRUGS (4)
  1. LIPITOR [Suspect]
     Dosage: 10 MG, 1X/DAY
     Route: 048
     Dates: start: 20080416, end: 20080901
  2. LIPITOR [Suspect]
     Dates: start: 20080416
  3. DEXAMETHASONE [Concomitant]
     Indication: ADRENOGENITAL SYNDROME
  4. PROTONIX [Concomitant]

REACTIONS (6)
  - BLOOD GLUCOSE DECREASED [None]
  - DIZZINESS [None]
  - FATIGUE [None]
  - IRRITABILITY [None]
  - MYALGIA [None]
  - PALPITATIONS [None]
